FAERS Safety Report 9259582 (Version 4)
Quarter: 2013Q2

REPORT INFORMATION
  Report Type: Report from Study
  Country: US (occurrence: US)
  Receive Date: 20130429
  Receipt Date: 20130627
  Transmission Date: 20140414
  Serious: Yes (Death, Hospitalization)
  Sender: FDA-Public Use
  Company Number: US-ROCHE-1215793

PATIENT
  Age: 63 Year
  Sex: Male

DRUGS (11)
  1. RITUXIMAB [Suspect]
     Indication: GRAFT VERSUS HOST DISEASE
     Dosage: STRENGTH: 10 MG/ML
     Route: 042
     Dates: start: 20130320, end: 20130408
  2. TACROLIMUS [Suspect]
     Indication: PRODUCT USED FOR UNKNOWN INDICATION
     Route: 065
     Dates: start: 201011
  3. PREDNISOLON [Concomitant]
     Route: 065
     Dates: start: 201106
  4. ACYCLOVIR [Concomitant]
     Route: 065
     Dates: start: 201104
  5. ERYTHROMYCIN OINTMENT [Concomitant]
     Route: 065
     Dates: start: 201301
  6. FLUCONAZOLE [Concomitant]
     Route: 065
     Dates: start: 201202
  7. FUROSEMIDE [Concomitant]
     Route: 065
     Dates: start: 201201
  8. OXYCODONE [Concomitant]
     Route: 065
     Dates: start: 201108
  9. PRADAXA [Concomitant]
     Route: 065
     Dates: start: 201208
  10. SULFAMETHOXAZOLE TMP [Concomitant]
     Route: 065
     Dates: start: 201208
  11. FLUOROMETHOLONE [Concomitant]
     Dosage: EYE DROPS
     Route: 065
     Dates: start: 201301

REACTIONS (4)
  - Pulmonary mycosis [Fatal]
  - Dyspnoea exertional [Recovered/Resolved]
  - Lung abscess [Unknown]
  - Renal failure acute [Unknown]
